FAERS Safety Report 4445056-5 (Version None)
Quarter: 2004Q3

REPORT INFORMATION
  Report Type: 
  Country: None (occurrence: None)
  Receive Date: 20040907
  Receipt Date: 20040825
  Transmission Date: 20050211
  Serious: Yes (Disabling)
  Sender: FDA-Public Use
  Company Number: 2004058984

PATIENT
  Age: 65 Year
  Sex: Female

DRUGS (6)
  1. ATARAX [Suspect]
     Indication: INSOMNIA
     Dosage: 50 MG (25 MG, 2 IN 1 D), ORAL
     Route: 048
     Dates: start: 20040517
  2. TIANEPTINE (TIANEPTINE) [Concomitant]
  3. RALOXIFENE HCL [Concomitant]
  4. ZOLPIDEM TARTRATE [Concomitant]
  5. ACETYLSALICYLIC ACID SRT [Concomitant]
  6. DIACEREIN (DIACEREIN) [Concomitant]

REACTIONS (3)
  - ACTIVITIES OF DAILY LIVING IMPAIRED [None]
  - MALAISE [None]
  - NIGHTMARE [None]
